FAERS Safety Report 6233602-0 (Version None)
Quarter: 2009Q2

REPORT INFORMATION
  Report Type: 
  Country: None (occurrence: None)
  Receive Date: 20090617
  Receipt Date: 20090204
  Transmission Date: 20091009
  Serious: Yes (Life-Threatening, Hospitalization, Disabling)
  Sender: FDA-Public Use
  Company Number: US-JNJFOC-20090201297

PATIENT
  Age: 4 Year
  Sex: Female

DRUGS (3)
  1. CHILDREN'S MOTRIN [Suspect]
     Indication: PAIN
  2. CHILDREN TYLENOL [Suspect]
  3. CHILDREN TYLENOL [Suspect]
     Indication: PAIN

REACTIONS (2)
  - BLINDNESS [None]
  - TOXIC EPIDERMAL NECROLYSIS [None]
